FAERS Safety Report 6395279-3 (Version None)
Quarter: 2009Q4

REPORT INFORMATION
  Report Type: 
  Country: None (occurrence: None)
  Receive Date: 20091009
  Receipt Date: 20091006
  Transmission Date: 20100525
  Serious: Yes (Disabling)
  Sender: FDA-Public Use
  Company Number: A0808066A

PATIENT
  Age: 64 Year
  Sex: Female
  Weight: 77.3 kg

DRUGS (6)
  1. BACTROBAN [Suspect]
     Indication: PROPHYLAXIS
     Dosage: 1APP TWICE PER DAY
     Route: 045
     Dates: start: 20090521, end: 20090526
  2. TOPROL-XL [Concomitant]
  3. TOPROL-XL [Concomitant]
     Dosage: 25MG PER DAY
  4. EPIDURAL [Concomitant]
  5. VITAMIN D3 [Concomitant]
  6. ASPIRIN [Concomitant]

REACTIONS (3)
  - AGEUSIA [None]
  - DYSGEUSIA [None]
  - PAROSMIA [None]
